FAERS Safety Report 18601500 (Version 1)
Quarter: 2020Q4

REPORT INFORMATION
  Report Type: Other
  Country: US (occurrence: US)
  Receive Date: 20201210
  Receipt Date: 20201210
  Transmission Date: 20210114
  Serious: Yes (Other)
  Sender: FDA-Public Use
  Company Number: US-ROCHE-2726681

PATIENT
  Sex: Female

DRUGS (16)
  1. ZOFRAN [Concomitant]
     Active Substance: ONDANSETRON HYDROCHLORIDE
  2. OLANZAPINE. [Concomitant]
     Active Substance: OLANZAPINE
  3. LOPERAMIDE [Concomitant]
     Active Substance: LOPERAMIDE
  4. EMEND [Concomitant]
     Active Substance: APREPITANT
  5. LISINOPRIL. [Concomitant]
     Active Substance: LISINOPRIL
  6. ADRIAMYCIN [Concomitant]
     Active Substance: DOXORUBICIN HYDROCHLORIDE
  7. PERJETA [Suspect]
     Active Substance: PERTUZUMAB
     Route: 042
  8. PERJETA [Suspect]
     Active Substance: PERTUZUMAB
     Indication: BREAST CANCER FEMALE
     Route: 042
  9. LACTOSE [Concomitant]
     Active Substance: LACTOSE
  10. INSULIN LISPRO [Concomitant]
     Active Substance: INSULIN LISPRO
  11. CARVEDILOL. [Concomitant]
     Active Substance: CARVEDILOL
  12. NEULASTA [Concomitant]
     Active Substance: PEGFILGRASTIM
  13. DECADRON [Concomitant]
     Active Substance: DEXAMETHASONE
  14. COMPAZINE [Concomitant]
     Active Substance: PROCHLORPERAZINE MALEATE
  15. NITROSTAT [Concomitant]
     Active Substance: NITROGLYCERIN
  16. CYTOXAN [Concomitant]
     Active Substance: CYCLOPHOSPHAMIDE

REACTIONS (1)
  - Cardiac dysfunction [Unknown]
